FAERS Safety Report 4641113-9 (Version None)
Quarter: 2005Q2

REPORT INFORMATION
  Report Type: 
  Country: None (occurrence: None)
  Receive Date: 20050421
  Receipt Date: 20050216
  Transmission Date: 20051028
  Serious: Yes (Hospitalization)
  Sender: FDA-Public Use
  Company Number: US-BRISTOL-MYERS SQUIBB COMPANY-12865259

PATIENT
  Sex: Male

DRUGS (2)
  1. PLATINOL-AQ [Suspect]
     Dosage: GIVEN ON DAY 1 AND DAY 8; FIRST DOSE 02-FEB-2005
     Route: 042
     Dates: start: 20050209, end: 20050209
  2. ETOPOSIDE [Suspect]
     Dosage: FIRST DOSE: 02-FEB-2005
     Route: 042
     Dates: start: 20050202, end: 20050206

REACTIONS (2)
  - PULMONARY EMBOLISM [None]
  - TINNITUS [None]
